FAERS Safety Report 4901969-9 (Version None)
Quarter: 2006Q1

REPORT INFORMATION
  Report Type: 
  Country: None (occurrence: None)
  Receive Date: 20060201
  Receipt Date: 20060201
  Transmission Date: 20060701
  Serious: Yes (Life-Threatening)
  Sender: FDA-Public Use
  Company Number: None

PATIENT
  Sex: Male
  Weight: 80.6 kg

DRUGS (2)
  1. ABCIXIMAB 10MG [Suspect]
     Indication: ANGINA PECTORIS
     Dosage: 7.2 MG IV
     Route: 042
     Dates: start: 20051220
  2. HEPARIN [Suspect]
     Dosage: 3,000 UNITS
     Dates: start: 20051220

REACTIONS (2)
  - PLATELET COUNT DECREASED [None]
  - POST PROCEDURAL COMPLICATION [None]
